FAERS Safety Report 11502190 (Version 1)
Quarter: 2015Q3

REPORT INFORMATION
  Report Type: Spontaneous
  Country: SE (occurrence: SE)
  Receive Date: 20150914
  Receipt Date: 20150914
  Transmission Date: 20151125
  Serious: Yes (Life-Threatening, Hospitalization)
  Sender: FDA-Public Use
  Company Number: SE-PFIZER INC-2015302435

PATIENT
  Age: 86 Year
  Sex: Male

DRUGS (3)
  1. FRAGMIN [Suspect]
     Active Substance: DALTEPARIN SODIUM
     Dosage: 5000 IU, SINGLE DOSE
     Dates: start: 20150518, end: 20150518
  2. HERACILLIN /00239102/ [Interacting]
     Active Substance: FLUCLOXACILLIN SODIUM ANHYDROUS
     Indication: OSTEITIS
     Dosage: 1.5 G, 3X/DAY
     Dates: start: 20150511, end: 20150521
  3. WARAN [Interacting]
     Active Substance: WARFARIN SODIUM
     Dosage: 2.5 MG, UNK
     Dates: end: 20150516

REACTIONS (3)
  - International normalised ratio increased [Recovered/Resolved]
  - Drug interaction [Recovered/Resolved]
  - Immune thrombocytopenic purpura [Recovered/Resolved]

NARRATIVE: CASE EVENT DATE: 20150516
